FAERS Safety Report 8609095-2 (Version None)
Quarter: 2012Q3

REPORT INFORMATION
  Report Type: 
  Country: None (occurrence: None)
  Receive Date: 20120821
  Receipt Date: 20120814
  Transmission Date: 20120928
  Serious: Yes (Other)
  Sender: FDA-Public Use
  Company Number: US-JNJFOC-20120521103

PATIENT
  Age: 44 Year
  Sex: Female

DRUGS (9)
  1. DOXORUBICIN HYDROCHLORIDE [Suspect]
     Indication: OVARIAN CANCER
     Dosage: MAINTENANCE DOSE FOR A TOTAL CUMULATIVE DOSE OF 1.696 MG
     Route: 042
     Dates: end: 20100401
  2. CARBOPLATIN [Suspect]
     Indication: OVARIAN CANCER
     Dosage: X 3 DAYS FOR 4 CYCLES
     Route: 065
     Dates: start: 20070713, end: 20070914
  3. TOPOTECAN HYDROCHLORIDE [Suspect]
     Route: 065
     Dates: start: 20050829
  4. CISPLATIN [Suspect]
     Indication: OVARIAN CANCER
     Dosage: X 3 DAYS FOR 4 CYCLES
     Route: 033
     Dates: start: 20050614, end: 20050810
  5. TOPOTECAN HYDROCHLORIDE [Suspect]
     Indication: OVARIAN CANCER
     Dosage: FOR 4 CYCLES
     Route: 065
     Dates: start: 20050614, end: 20050802
  6. DOXORUBICIN HYDROCHLORIDE [Suspect]
     Dosage: 3 CYCLES GIVEN
     Route: 042
     Dates: start: 20070713, end: 20070914
  7. ABT-888 [Suspect]
     Indication: OVARIAN CANCER
     Route: 048
     Dates: start: 20100601, end: 20110401
  8. CYCLOPHOSPHAMIDE [Suspect]
     Indication: OVARIAN CANCER
     Route: 065
     Dates: start: 20100601, end: 20110401
  9. PACLITAXEL [Suspect]
     Indication: OVARIAN CANCER
     Dosage: X 3 DAYS FOR 4 CYCLES
     Route: 065
     Dates: start: 20070713, end: 20070914

REACTIONS (3)
  - THROMBOCYTOPENIA [None]
  - SQUAMOUS CELL CARCINOMA [None]
  - CARBOHYDRATE ANTIGEN 125 INCREASED [None]
